FAERS Safety Report 6367836-1 (Version None)
Quarter: 2009Q3

REPORT INFORMATION
  Report Type: 
  Country: None (occurrence: None)
  Receive Date: 20090921
  Receipt Date: 20090911
  Transmission Date: 20100115
  Serious: Yes (Other)
  Sender: FDA-Public Use
  Company Number: BR-TYCO HEALTHCARE/MALLINCKRODT-T200901713

PATIENT
  Age: 59 Year
  Sex: Female

DRUGS (3)
  1. SODIUM IODIDE I 131 [Suspect]
     Indication: RADIOISOTOPE SCAN
     Dosage: DIAGNOSTIC
  2. SODIUM IODIDE I 131 [Suspect]
     Indication: RADIOACTIVE IODINE THERAPY
     Dosage: 15 MCI, SINGLE (THERAPY)
  3. SODIUM IODIDE I 131 [Suspect]
     Dosage: 15 MCI, SINGLE (THERAPY)

REACTIONS (2)
  - BASEDOW'S DISEASE [None]
  - HYPOTHYROIDISM [None]
